FAERS Safety Report 10675673 (Version 4)
Quarter: 2015Q4

REPORT INFORMATION
  Report Type: Spontaneous
  Country: DK (occurrence: DK)
  Receive Date: 20141224
  Receipt Date: 20151201
  Transmission Date: 20160304
  Serious: Yes (Other)
  Sender: FDA-Public Use
  Company Number: DK-WATSON-2014-27252

PATIENT
  Age: 90 Year
  Sex: Female

DRUGS (16)
  1. KALEORID [Concomitant]
     Active Substance: POTASSIUM CHLORIDE
     Indication: MINERAL SUPPLEMENTATION
     Dosage: UNK
     Route: 065
  2. PINEX                              /00020001/ [Concomitant]
     Active Substance: ACETAMINOPHEN
     Indication: PAIN
     Dosage: UNK
     Route: 065
  3. ZOLPIDEM TARTRATE. [Concomitant]
     Active Substance: ZOLPIDEM TARTRATE
     Indication: PRODUCT USED FOR UNKNOWN INDICATION
     Dosage: UNK
     Route: 048
  4. MOTILIUM [Concomitant]
     Active Substance: DOMPERIDONE
     Indication: NAUSEA
     Dosage: UNK, PRN
     Route: 065
  5. RAMIPRIL ACTAVIS [Concomitant]
     Active Substance: RAMIPRIL
     Indication: BLOOD PRESSURE ABNORMAL
     Dosage: UNK
     Route: 065
  6. MIRTAZAPINE. [Suspect]
     Active Substance: MIRTAZAPINE
     Indication: DEPRESSION
     Dosage: 45 MG, UNKNOWN
     Route: 048
     Dates: start: 20131104, end: 20140812
  7. CENTYL MED KALIUMKLORID [Concomitant]
     Active Substance: BENDROFLUMETHIAZIDE\POTASSIUM CHLORIDE
     Indication: BLOOD PRESSURE INCREASED
     Dosage: UNK
     Route: 065
  8. OXAPAX [Concomitant]
     Active Substance: OXAZEPAM
     Indication: SEDATION
     Dosage: UNK, PRN
     Route: 065
  9. TRIMOPAN                           /00158501/ [Concomitant]
     Active Substance: TRIMETHOPRIM
     Indication: PROPHYLAXIS URINARY TRACT INFECTION
     Dosage: UNK
     Route: 065
  10. LANSOPRAZOLE. [Concomitant]
     Active Substance: LANSOPRAZOLE
     Indication: PRODUCT USED FOR UNKNOWN INDICATION
     Dosage: UNK
     Route: 065
  11. TRAMADOL (UNKNOWN) [Interacting]
     Active Substance: TRAMADOL
     Indication: PAIN
     Dosage: 150 MG, DAILY (TRAMADOL RETARD)
     Route: 065
     Dates: start: 20140313
  12. NORSPAN [Concomitant]
     Active Substance: BUPRENORPHINE
     Indication: PAIN
     Dosage: UNK
     Route: 065
  13. ALENDRONATE SODIUM. [Concomitant]
     Active Substance: ALENDRONATE SODIUM
     Indication: OSTEOPOROSIS
     Dosage: UNK
     Route: 065
  14. TRAMADOL (UNKNOWN) [Interacting]
     Active Substance: TRAMADOL
     Dosage: 50 MG, PRN ( ONE AS NEEDED, MAX 3 A DAY)
     Dates: start: 20140313
  15. CLOPIDOGREL ACTAVIS                /01220704/ [Concomitant]
     Active Substance: CLOPIDOGREL BESILATE
     Indication: THROMBOSIS PROPHYLAXIS
     Dosage: UNK
     Route: 065
  16. EMPERAL [Concomitant]
     Active Substance: METOCLOPRAMIDE HYDROCHLORIDE
     Indication: NAUSEA
     Dosage: UNK
     Route: 065

REACTIONS (3)
  - Discomfort [Unknown]
  - Drug interaction [Unknown]
  - Serotonin syndrome [Recovered/Resolved]

NARRATIVE: CASE EVENT DATE: 2014
